FAERS Safety Report 9717496 (Version 2)
Quarter: 2015Q3

REPORT INFORMATION
  Report Type: Spontaneous
  Country: US (occurrence: US)
  Receive Date: 20131127
  Receipt Date: 20150803
  Transmission Date: 20151125
  Serious: No
  Sender: FDA-Public Use
  Company Number: US-GILEAD-2009-0019859

PATIENT
  Age: 50 Year
  Sex: Male

DRUGS (1)
  1. LETAIRIS [Suspect]
     Active Substance: AMBRISENTAN
     Indication: PULMONARY ARTERIAL HYPERTENSION
     Route: 048
     Dates: start: 20081218, end: 20090101

REACTIONS (4)
  - Malaise [Unknown]
  - Swelling [Unknown]
  - Rash [Unknown]
  - Oedema [Unknown]

NARRATIVE: CASE EVENT DATE: 20090101
